FAERS Safety Report 25883853 (Version 1)
Quarter: 2025Q4

REPORT INFORMATION
  Report Type: Spontaneous
  Country: EU (occurrence: EU)
  Receive Date: 20251006
  Receipt Date: 20251006
  Transmission Date: 20260117
  Serious: Yes (Other)
  Sender: BAYER HEALTHCARE PHARMACEUTICALS INC.
  Company Number: EU-BAYER-2025A128121

PATIENT
  Age: 60 Year
  Sex: Male

DRUGS (11)
  1. KERENDIA [Suspect]
     Active Substance: FINERENONE
     Indication: Chronic kidney disease
     Dosage: 10 MG
  2. KERENDIA [Suspect]
     Active Substance: FINERENONE
     Indication: Type 2 diabetes mellitus
  3. BISOPROLOL [Concomitant]
     Active Substance: BISOPROLOL
     Dosage: 5 MG
  4. Amlopin [Concomitant]
     Dosage: 5 MG
  5. DAPAGLIFLOZIN [Concomitant]
     Active Substance: DAPAGLIFLOZIN
     Dosage: 10 MG
  6. MOXONIDINE [Concomitant]
     Active Substance: MOXONIDINE
     Dosage: 0.2 MG
  7. TRIMETAZIDINE DIHYDROCHLORIDE [Concomitant]
     Active Substance: TRIMETAZIDINE DIHYDROCHLORIDE
  8. ATORVASTATIN [Concomitant]
     Active Substance: ATORVASTATIN
     Dosage: 40 MG
  9. TOUJEO [Concomitant]
     Active Substance: INSULIN GLARGINE
  10. Zoprax [Concomitant]
     Dosage: 40 MG
  11. ALLOPURINOL [Concomitant]
     Active Substance: ALLOPURINOL
     Dosage: 100 MG

REACTIONS (6)
  - Coronary artery disease [None]
  - Cardiorenal syndrome [None]
  - Type 2 diabetes mellitus [None]
  - Heart failure with preserved ejection fraction [None]
  - Cardiac failure [None]
  - Glomerular filtration rate decreased [None]

NARRATIVE: CASE EVENT DATE: 20240601
